FAERS Safety Report 5520287-1 (Version None)
Quarter: 2007Q4

REPORT INFORMATION
  Report Type: 
  Country: None (occurrence: None)
  Receive Date: 20071115
  Receipt Date: 20071115
  Transmission Date: 20080405
  Serious: Yes (Life-Threatening, Hospitalization)
  Sender: FDA-Public Use
  Company Number: None

PATIENT
  Age: 39 Year
  Sex: Male
  Weight: 88.4514 kg

DRUGS (3)
  1. WINRHO [Suspect]
     Indication: IDIOPATHIC THROMBOCYTOPENIC PURPURA
     Dosage: 6600 MCG IV; 6600 MCG IV
     Route: 042
     Dates: start: 20070621
  2. WINRHO [Suspect]
     Indication: IDIOPATHIC THROMBOCYTOPENIC PURPURA
     Dosage: 6600 MCG IV; 6600 MCG IV
     Route: 042
     Dates: start: 20070816
  3. DANAZOL [Concomitant]

REACTIONS (2)
  - ANAEMIA [None]
  - HAEMOLYSIS [None]
